FAERS Safety Report 24113625 (Version 1)
Quarter: 2024Q3

REPORT INFORMATION
  Report Type: Report from Study
  Country: CO (occurrence: CO)
  Receive Date: 20240720
  Receipt Date: 20240720
  Transmission Date: 20241016
  Serious: Yes (Life-Threatening, Hospitalization)
  Sender: ABBVIE
  Company Number: CO-ABBVIE-5845239

PATIENT
  Age: 69 Year
  Sex: Male
  Weight: 61 kg

DRUGS (4)
  1. SKYRIZI [Suspect]
     Active Substance: RISANKIZUMAB-RZAA
     Indication: Psoriasis
     Dosage: FORM STRENGTH: 150 MG
     Route: 058
     Dates: start: 20240710
  2. SKYRIZI [Suspect]
     Active Substance: RISANKIZUMAB-RZAA
     Dosage: FORM STRENGTH: 150 MG
     Route: 058
     Dates: start: 20210718, end: 20240326
  3. TRELEGY ELLIPTA [Concomitant]
     Active Substance: FLUTICASONE FUROATE\UMECLIDINIUM BROMIDE\VILANTEROL TRIFENATATE
     Indication: Chronic obstructive pulmonary disease
     Dosage: 1 PUFF
     Route: 055
     Dates: start: 2021
  4. Berodual hfa [Concomitant]
     Indication: Chronic obstructive pulmonary disease
     Route: 055
     Dates: start: 202401

REACTIONS (6)
  - Hypercapnia [Recovering/Resolving]
  - Depressed mood [Recovered/Resolved]
  - Influenza [Recovering/Resolving]
  - Gait disturbance [Unknown]
  - Aphonia [Recovering/Resolving]
  - Muscular weakness [Unknown]

NARRATIVE: CASE EVENT DATE: 20240601
